FAERS Safety Report 6106456-0 (Version None)
Quarter: 2009Q1

REPORT INFORMATION
  Report Type: 
  Country: None (occurrence: None)
  Receive Date: 20090306
  Receipt Date: 20090225
  Transmission Date: 20090719
  Serious: Yes (Other)
  Sender: FDA-Public Use
  Company Number: US-SANOFI-SYNTHELABO-A03200900856

PATIENT

DRUGS (3)
  1. ASPIRIN [Suspect]
     Indication: MYOCARDIAL INFARCTION
     Dosage: UNK
     Route: 065
  2. PLAVIX [Suspect]
     Indication: MYOCARDIAL INFARCTION
     Dosage: UNK
     Route: 048
  3. PLAVIX [Suspect]
     Dosage: UNK
     Route: 048

REACTIONS (3)
  - HAEMORRHAGE [None]
  - IN-STENT CORONARY ARTERY RESTENOSIS [None]
  - PANCYTOPENIA [None]
